FAERS Safety Report 16307551 (Version 5)
Quarter: 2020Q1

REPORT INFORMATION
  Report Type: Report from Study
  Country: None (occurrence: US)
  Receive Date: 20190514
  Receipt Date: 20200101
  Transmission Date: 20200409
  Serious: Yes (Hospitalization)
  Sender: FDA-Public Use
  Company Number: US-ABBVIE-19K-163-2780185-00

PATIENT
  Age: 77 Year
  Sex: Male
  Weight: 73.55 kg

DRUGS (5)
  1. LATANOPROST. [Concomitant]
     Active Substance: LATANOPROST
     Indication: GLAUCOMA
  2. HUMIRA [Suspect]
     Active Substance: ADALIMUMAB
     Route: 058
  3. ALBUTEROL. [Concomitant]
     Active Substance: ALBUTEROL
     Indication: RESPIRATION ABNORMAL
  4. PROAIR HFA [Concomitant]
     Active Substance: ALBUTEROL SULFATE
     Indication: RESPIRATION ABNORMAL
  5. HUMIRA [Suspect]
     Active Substance: ADALIMUMAB
     Indication: PSORIASIS
     Route: 058
     Dates: start: 2016

REACTIONS (1)
  - Chronic obstructive pulmonary disease [Recovering/Resolving]
